FAERS Safety Report 6692415-6 (Version None)
Quarter: 2010Q2

REPORT INFORMATION
  Report Type: 
  Country: None (occurrence: None)
  Receive Date: 20100422
  Receipt Date: 20100420
  Transmission Date: 20101027
  Serious: Yes (Hospitalization)
  Sender: FDA-Public Use
  Company Number: GXKR2009DE06553

PATIENT
  Age: 71 Year
  Sex: Male
  Weight: 80 kg

DRUGS (5)
  1. HYDROCHLOROTHIAZIDE [Interacting]
     Indication: HYPERTENSION
     Dosage: 12.5 MG, UNK
     Route: 048
     Dates: start: 20070801, end: 20081202
  2. METOPROLOL SUCCINATE (NGX) [Suspect]
     Indication: HYPERTENSION
     Dosage: 47.5 MG, QD
     Route: 048
     Dates: start: 20070801, end: 20081202
  3. RAMIPRIL [Interacting]
     Indication: CORONARY ARTERY DISEASE
     Dosage: 5 MG, QD
     Route: 048
     Dates: start: 20070801
  4. ASS ^CT-ARZNEIMITTEL^ [Concomitant]
     Route: 048
  5. LOCOL [Concomitant]
     Route: 048

REACTIONS (2)
  - BRADYCARDIA [None]
  - HYPOTENSION [None]
